FAERS Safety Report 17556135 (Version 1)
Quarter: 2020Q1

REPORT INFORMATION
  Report Type: Spontaneous
  Country: US (occurrence: US)
  Receive Date: 20200318
  Receipt Date: 20200318
  Transmission Date: 20200409
  Serious: No
  Sender: FDA-Public Use
  Company Number: US-THERAPEUTICSMD-2019TMD05336

PATIENT
  Age: 72 Year
  Sex: Female
  Weight: 46.71 kg

DRUGS (3)
  1. IMVEXXY [Suspect]
     Active Substance: ESTRADIOL
     Indication: VULVOVAGINAL DRYNESS
     Dosage: 4 ?G, 2X/WEEK, AT BEDTIME
     Route: 067
     Dates: start: 20191216
  2. VITAMIN D [Concomitant]
     Active Substance: VITAMIN D NOS
  3. CALCIUM [Concomitant]
     Active Substance: CALCIUM

REACTIONS (4)
  - Vulvovaginal discomfort [Not Recovered/Not Resolved]
  - Off label use [Not Recovered/Not Resolved]
  - Genital labial adhesions [Not Recovered/Not Resolved]
  - Vaginal discharge [Not Recovered/Not Resolved]

NARRATIVE: CASE EVENT DATE: 201912
